FAERS Safety Report 15890868 (Version 1)
Quarter: 2019Q1

REPORT INFORMATION
  Report Type: Spontaneous
  Country: FR (occurrence: FR)
  Receive Date: 20190130
  Receipt Date: 20190130
  Transmission Date: 20190417
  Serious: Yes (Congenital Anomaly)
  Sender: FDA-Public Use
  Company Number: FR-TEVA-2019-FR-1004559

PATIENT
  Age: 0 Day
  Sex: Male
  Weight: 2.14 kg

DRUGS (4)
  1. ETOPOSIDE MYLAN 20 MG/ML, SOLUTION ? DILUER POUR PERFUSION [Suspect]
     Active Substance: ETOPOSIDE
     Indication: ANAPLASTIC LARGE-CELL LYMPHOMA
     Route: 064
     Dates: start: 20181002, end: 20181023
  2. ENDOXAN [Suspect]
     Active Substance: CYCLOPHOSPHAMIDE
     Indication: ANAPLASTIC LARGE-CELL LYMPHOMA
     Route: 064
     Dates: start: 20181002, end: 20181023
  3. VINCRISTINE HOSPIRA 2 MG/2 ML, SOLUTION INJECTABLE [Suspect]
     Active Substance: VINCRISTINE SULFATE
     Indication: ANAPLASTIC LARGE-CELL LYMPHOMA
     Route: 064
     Dates: start: 20181002, end: 20181023
  4. DOXORUBICINE TEVA 50 MG/25 ML, SOLUTION INJECTABLE [Suspect]
     Active Substance: DOXORUBICIN
     Indication: ANAPLASTIC LARGE-CELL LYMPHOMA
     Route: 064
     Dates: start: 20181002, end: 20181023

REACTIONS (3)
  - Neutropenia [Recovered/Resolved]
  - Anaemia [Recovering/Resolving]
  - Leukopenia [Recovered/Resolved]

NARRATIVE: CASE EVENT DATE: 20181112
